FAERS Safety Report 6631101-5 (Version None)
Quarter: 2010Q1

REPORT INFORMATION
  Report Type: 
  Country: None (occurrence: None)
  Receive Date: 20100309
  Receipt Date: 20100222
  Transmission Date: 20100710
  Serious: Yes (Hospitalization)
  Sender: FDA-Public Use
  Company Number: 2010000648

PATIENT
  Age: 79 Year
  Sex: Female

DRUGS (6)
  1. ERLOTINIB HYDROCHLORIDE [Suspect]
     Indication: NON-SMALL CELL LUNG CANCER
     Dosage: (150 MG, QD), ORAL
     Route: 048
     Dates: start: 20090910
  2. MEGESTROL ACETATE [Concomitant]
  3. DILTIAZEM [Concomitant]
  4. PRILOSEC [Concomitant]
  5. PEPCID [Concomitant]
  6. COMPAZINE [Concomitant]

REACTIONS (5)
  - DEEP VEIN THROMBOSIS [None]
  - HYPONATRAEMIA [None]
  - INTESTINAL OBSTRUCTION [None]
  - SMALL INTESTINAL OBSTRUCTION [None]
  - SUPRAVENTRICULAR TACHYCARDIA [None]
